FAERS Safety Report 8323001-X (Version None)
Quarter: 2012Q2

REPORT INFORMATION
  Report Type: 
  Country: None (occurrence: None)
  Receive Date: 20120430
  Receipt Date: 20120423
  Transmission Date: 20120825
  Serious: Yes (Hospitalization, Other)
  Sender: FDA-Public Use
  Company Number: US-PFIZER INC-2012047571

PATIENT
  Sex: Male
  Weight: 99.773 kg

DRUGS (9)
  1. LISINOPRIL [Concomitant]
     Indication: BLOOD PRESSURE ABNORMAL
     Dosage: 20 MG, DAILY
  2. PERCOCET [Suspect]
     Indication: BREAKTHROUGH PAIN
     Dosage: 10/325 MG, UP TO SIX TIMES A DAY
  3. LYRICA [Suspect]
     Indication: SPINAL COLUMN INJURY
     Dosage: 300 MG, 2X/DAY
     Route: 048
  4. ELAVIL [Concomitant]
     Dosage: UNK
  5. MS CONTIN [Suspect]
     Indication: SPINAL CORD DISORDER
     Dosage: 60 MG, 2X/DAY
  6. SOMA [Concomitant]
     Indication: NERVE INJURY
  7. LYRICA [Suspect]
     Indication: SPINAL CORD DISORDER
     Dosage: 450 MG, 2X/DAY
     Route: 048
     Dates: start: 20050101
  8. VALIUM [Concomitant]
     Dosage: 10 MG, 3X/DAY
  9. SOMA [Concomitant]
     Indication: MUSCULOSKELETAL PAIN
     Dosage: 350 MG, 3X/DAY

REACTIONS (17)
  - BLOOD PRESSURE INCREASED [None]
  - RESTLESSNESS [None]
  - TREMOR [None]
  - CHEST PAIN [None]
  - WITHDRAWAL SYNDROME [None]
  - WEIGHT DECREASED [None]
  - MOOD SWINGS [None]
  - INSOMNIA [None]
  - TOXICITY TO VARIOUS AGENTS [None]
  - LOW DENSITY LIPOPROTEIN INCREASED [None]
  - ANGER [None]
  - CRYING [None]
  - DRY MOUTH [None]
  - DECREASED APPETITE [None]
  - PAIN [None]
  - HYPERHIDROSIS [None]
  - AGITATION [None]
